FAERS Safety Report 10028827 (Version 1)
Quarter: 2014Q1

REPORT INFORMATION
  Report Type: Spontaneous
  Country: US (occurrence: US)
  Receive Date: 20140321
  Receipt Date: 20140321
  Transmission Date: 20141002
  Serious: Yes (Other)
  Sender: FDA-Public Use
  Company Number: US-TEVA-469895USA

PATIENT
  Age: 6 Year
  Sex: Female

DRUGS (10)
  1. BLEOMYCIN [Suspect]
     Indication: SMALL CELL CARCINOMA
     Dosage: 15 IU/M2 EVERY 3-4W (PART OF VPCBAE CHEMOTHERAPY)
  2. CARBOPLATIN [Suspect]
     Indication: SMALL CELL CARCINOMA
     Dosage: PART OF HD-SCR CONSOLIDATION
  3. CISPLATIN [Suspect]
     Indication: SMALL CELL CARCINOMA
     Dosage: EVERY 3-4W (PART OF VPCBAE CHEMOTHERAPY)
  4. DOXORUBICIN [Suspect]
     Indication: SMALL CELL CARCINOMA
     Dosage: EVERY 3-4W (PART OF VPCBAE CHEMOTHERAPY)
  5. ETOPOSIDE [Suspect]
     Indication: SMALL CELL CARCINOMA
     Dosage: EVERY 3-4W (PART OF VPCBAE CHEMOTHERAPY)
  6. ETOPOSIDE [Suspect]
     Indication: SMALL CELL CARCINOMA
     Dosage: PART OF HD-SCR CONSOLIDATION
     Route: 065
  7. CYCLOPHOSPHAMIDE [Suspect]
     Indication: SMALL CELL CARCINOMA
     Dosage: EVERY 3-4W (PART OF VPCBAE CHEMOTHERAPY)
  8. MELPHALAN [Suspect]
     Indication: SMALL CELL CARCINOMA
     Dosage: PART OF HD-SCR CONSOLIDATION
  9. BEVACIZUMAB [Suspect]
     Indication: SMALL CELL CARCINOMA
     Dosage: 5 OR 10 MG/KG EVERY 2W
  10. VINBLASTINE [Suspect]
     Indication: SMALL CELL CARCINOMA
     Dosage: EVERY 3-4W (PART OF VPCBAE CHEMOTHERAPY)

REACTIONS (6)
  - Bone marrow failure [Unknown]
  - Venoocclusive liver disease [Recovered/Resolved]
  - Abdominal compartment syndrome [Recovered/Resolved]
  - Febrile neutropenia [Unknown]
  - Decreased appetite [Unknown]
  - Diarrhoea [Unknown]
